FAERS Safety Report 6415565-8 (Version None)
Quarter: 2009Q4

REPORT INFORMATION
  Report Type: 
  Country: None (occurrence: None)
  Receive Date: 20091027
  Receipt Date: 20091023
  Transmission Date: 20100525
  Serious: Yes (Death)
  Sender: FDA-Public Use
  Company Number: IT-BRISTOL-MYERS SQUIBB COMPANY-14828560

PATIENT
  Age: 83 Year
  Sex: Male

DRUGS (5)
  1. COUMADIN [Suspect]
     Indication: ATRIAL FIBRILLATION
     Dosage: ALSO TAKEN 5MG EVERY 4DAYS
     Route: 048
     Dates: start: 20090902, end: 20091020
  2. ACETYLSALICYLIC ACID [Concomitant]
  3. ALLOPURINOL [Concomitant]
  4. ENALAPRIL MALEATE [Concomitant]
  5. ISOSORBIDE DINITRATE [Concomitant]

REACTIONS (3)
  - ANAEMIA [None]
  - CARDIOGENIC SHOCK [None]
  - OVERDOSE [None]
